FAERS Safety Report 9624338 (Version 1)
Quarter: 2013Q4

REPORT INFORMATION
  Report Type: Spontaneous
  Country: US (occurrence: US)
  Receive Date: 20131015
  Receipt Date: 20131015
  Transmission Date: 20140711
  Serious: Yes (Death)
  Sender: FDA-Public Use
  Company Number: US-GLAXOSMITHKLINE-A1045058A

PATIENT
  Age: 55 Year
  Sex: Female

DRUGS (11)
  1. ARIXTRA [Suspect]
     Indication: THROMBOSIS
     Dosage: 7.5MG PER DAY
     Route: 058
     Dates: start: 201204, end: 20131007
  2. MS CONTIN [Concomitant]
  3. DEXAMETHASONE [Concomitant]
  4. ATIVAN [Concomitant]
  5. PAXIL [Concomitant]
  6. MORPHINE [Concomitant]
  7. HYOSCYAMINE [Concomitant]
  8. ZOFRAN [Concomitant]
  9. PHENERGAN [Concomitant]
  10. METHADONE [Concomitant]
  11. ATENOLOL [Concomitant]

REACTIONS (1)
  - Bone cancer [Fatal]
